FAERS Safety Report 10625993 (Version 1)
Quarter: 2014Q4

REPORT INFORMATION
  Report Type: Spontaneous
  Country: US (occurrence: None)
  Receive Date: 20141121
  Receipt Date: 20141121
  Transmission Date: 20150529
  Serious: No
  Sender: FDA-Public Use
  Company Number: 163-10004-14082266

PATIENT
  Age: 65 Year
  Sex: Female

DRUGS (5)
  1. OTEZLA [Suspect]
     Active Substance: APREMILAST
     Indication: PSORIATIC ARTHROPATHY
     Route: 048
     Dates: start: 20140716
  2. CENTRUM [Concomitant]
     Active Substance: VITAMINS
  3. PHENTERMINE [Concomitant]
     Active Substance: PHENTERMINE
  4. LISINOPRIL AND HYDROCHLOROTHIAZIDE [Concomitant]
     Active Substance: HYDROCHLOROTHIAZIDE\LISINOPRIL
  5. REMICADE [Concomitant]
     Active Substance: INFLIXIMAB

REACTIONS (3)
  - Hyperhidrosis [None]
  - Feeling hot [None]
  - Diarrhoea [None]

NARRATIVE: CASE EVENT DATE: 20140716
